FAERS Safety Report 24431673 (Version 2)
Quarter: 2024Q4

REPORT INFORMATION
  Report Type: Spontaneous
  Country: BR (occurrence: BR)
  Receive Date: 20241014
  Receipt Date: 20241030
  Transmission Date: 20250114
  Serious: Yes (Other)
  Sender: NOVO NORDISK
  Company Number: BR-NOVOPROD-1295106

PATIENT
  Age: 33 Year
  Sex: Female

DRUGS (1)
  1. OZEMPIC [Suspect]
     Active Substance: SEMAGLUTIDE
     Indication: Weight control
     Dosage: 20 IU, BELIEVING SHE WAS TAKING 0.25MG OF SEMAGLUTIDE
     Dates: start: 2023, end: 202410

REACTIONS (7)
  - Hyperhidrosis [Recovered/Resolved]
  - Malaise [Recovered/Resolved]
  - Dizziness [Recovered/Resolved]
  - Product use issue [Recovered/Resolved]
  - Hypoglycaemia [Recovered/Resolved]
  - Suspected counterfeit product [Recovered/Resolved]
  - Off label use [Recovered/Resolved]

NARRATIVE: CASE EVENT DATE: 20230101
